FAERS Safety Report 9346048 (Version 9)
Quarter: 2015Q3

REPORT INFORMATION
  Report Type: Report from Study
  Country: CA (occurrence: CA)
  Receive Date: 20130613
  Receipt Date: 20150916
  Transmission Date: 20151125
  Serious: Yes (Life-Threatening, Other)
  Sender: FDA-Public Use
  Company Number: CA-ROCHE-1099505

PATIENT
  Age: 72 Year
  Sex: Female
  Weight: 102.5 kg

DRUGS (22)
  1. BUPROPION. [Concomitant]
     Active Substance: BUPROPION
     Dosage: SR
     Route: 065
  2. SOLU-MEDROL [Concomitant]
     Active Substance: METHYLPREDNISOLONE SODIUM SUCCINATE
     Indication: PREMEDICATION
     Route: 042
     Dates: start: 20120725, end: 20130604
  3. RITUXAN [Suspect]
     Active Substance: RITUXIMAB
     Route: 042
     Dates: start: 20130604, end: 20130604
  4. METHYLPREDNISOLONE. [Concomitant]
     Active Substance: METHYLPREDNISOLONE
     Dosage: PRIOR TO INFUSION
     Route: 042
     Dates: start: 20120725
  5. LORAZEPAM. [Concomitant]
     Active Substance: LORAZEPAM
  6. ATENOLOL. [Concomitant]
     Active Substance: ATENOLOL
  7. TYLENOL [Concomitant]
     Active Substance: ACETAMINOPHEN
     Indication: PREMEDICATION
     Route: 048
     Dates: start: 20120725, end: 20130604
  8. HYDROCHLOROTHIAZIDE. [Concomitant]
     Active Substance: HYDROCHLOROTHIAZIDE
     Route: 065
  9. SIMVASTATIN. [Concomitant]
     Active Substance: SIMVASTATIN
  10. OMEPRAZOLE. [Concomitant]
     Active Substance: OMEPRAZOLE
  11. MAVIK [Concomitant]
     Active Substance: TRANDOLAPRIL
  12. MACROBID [Concomitant]
     Active Substance: NITROFURANTOIN\NITROFURANTOIN MONOHYDRATE
  13. ACETAMINOPHEN. [Concomitant]
     Active Substance: ACETAMINOPHEN
     Dosage: AS REQUIRED?AND PRIOR TO INFUSION
     Route: 048
     Dates: start: 20120725, end: 20130604
  14. ADALAT [Concomitant]
     Active Substance: NIFEDIPINE
  15. SLOW-K [Concomitant]
     Active Substance: POTASSIUM CHLORIDE
  16. HYDROMORPHONE [Concomitant]
     Active Substance: HYDROMORPHONE
     Route: 065
  17. DIPHENHYDRAMINE HCL [Concomitant]
     Active Substance: DIPHENHYDRAMINE HYDROCHLORIDE
     Dosage: PRIOR TO INFUSION
     Route: 048
     Dates: start: 20120725
  18. RITUXAN [Suspect]
     Active Substance: RITUXIMAB
     Indication: RHEUMATOID ARTHRITIS
     Dosage: LAST DOSE WAS ON 12/JUN/2014, 18/JUL/2014
     Route: 042
     Dates: start: 20120725
  19. BENADRYL [Concomitant]
     Active Substance: DIPHENHYDRAMINE HYDROCHLORIDE
     Indication: PREMEDICATION
     Route: 048
     Dates: start: 20120725, end: 20130604
  20. WARFARIN [Concomitant]
     Active Substance: WARFARIN
  21. SYMBICORT [Concomitant]
     Active Substance: BUDESONIDE\FORMOTEROL FUMARATE DIHYDRATE
  22. VESICARE [Concomitant]
     Active Substance: SOLIFENACIN SUCCINATE

REACTIONS (20)
  - Hypoaesthesia [Recovering/Resolving]
  - Dyspnoea [Recovered/Resolved]
  - Tinnitus [Recovered/Resolved]
  - Paraesthesia [Recovering/Resolving]
  - Atrial fibrillation [Unknown]
  - Atrial fibrillation [Unknown]
  - Pain [Unknown]
  - Palpitations [Recovered/Resolved]
  - Heart rate increased [Unknown]
  - Infusion related reaction [Recovering/Resolving]
  - Throat irritation [Recovering/Resolving]
  - Flushing [Recovered/Resolved]
  - Pharyngeal mass [Not Recovered/Not Resolved]
  - Oxygen saturation decreased [Unknown]
  - Dysgeusia [Recovered/Resolved]
  - Malaise [Not Recovered/Not Resolved]
  - Tremor [Recovered/Resolved]
  - Headache [Recovered/Resolved]
  - Throat tightness [Recovering/Resolving]
  - Sinus congestion [Recovered/Resolved]

NARRATIVE: CASE EVENT DATE: 20120807
